FAERS Safety Report 8261233-X (Version None)
Quarter: 2012Q2

REPORT INFORMATION
  Report Type: 
  Country: None (occurrence: None)
  Receive Date: 20120405
  Receipt Date: 20120324
  Transmission Date: 20120825
  Serious: Yes (Hospitalization)
  Sender: FDA-Public Use
  Company Number: JP-ELI_LILLY_AND_COMPANY-JP201102004810

PATIENT
  Age: 65 Year
  Sex: Female

DRUGS (2)
  1. FORTEO [Suspect]
     Dosage: UNK
     Dates: start: 20120301
  2. FORTEO [Suspect]
     Dosage: UNK
     Route: 058
     Dates: end: 20120101

REACTIONS (5)
  - INJECTION SITE HAEMATOMA [None]
  - HOSPITALISATION [None]
  - INDURATION [None]
  - BACK PAIN [None]
  - INJECTION SITE ERYTHEMA [None]
